FAERS Safety Report 6425983-X (Version None)
Quarter: 2009Q4

REPORT INFORMATION
  Report Type: 
  Country: None (occurrence: None)
  Receive Date: 20091103
  Receipt Date: 20091103
  Transmission Date: 20100525
  Serious: Yes (Hospitalization)
  Sender: FDA-Public Use
  Company Number: None

PATIENT
  Age: 49 Year
  Sex: Male

DRUGS (1)
  1. AMPICILLIN AND SULBACTAM [Suspect]
     Indication: PEPTOSTREPTOCOCCUS INFECTION
     Dosage: 3 GM QID IV
     Route: 042
     Dates: start: 20081215, end: 20090114

REACTIONS (1)
  - HEPATITIS [None]
